FAERS Safety Report 5016724-1 (Version None)
Quarter: 2006Q2

REPORT INFORMATION
  Report Type: 
  Country: None (occurrence: None)
  Receive Date: 20060602
  Receipt Date: 20050330
  Transmission Date: 20061013
  Serious: No
  Sender: FDA-Public Use
  Company Number: US-GLAXOSMITHKLINE-A0551955A

PATIENT
  Age: 11 Month
  Sex: Female

DRUGS (1)
  1. AUGMENTIN ES-600 [Suspect]
     Indication: DRUG USE FOR UNKNOWN INDICATION
     Dosage: 3ML TWICE PER DAY
     Route: 048
     Dates: start: 20050302, end: 20050311

REACTIONS (1)
  - DRUG INEFFECTIVE [None]
